FAERS Safety Report 18607034 (Version 3)
Quarter: 2020Q4

REPORT INFORMATION
  Report Type: Spontaneous
  Country: US (occurrence: US)
  Receive Date: 20201211
  Receipt Date: 20201218
  Transmission Date: 20210114
  Serious: No
  Sender: FDA-Public Use
  Company Number: US-PFIZER INC-2020490081

PATIENT
  Age: 78 Year
  Sex: Female

DRUGS (1)
  1. IBRANCE [Suspect]
     Active Substance: PALBOCICLIB
     Indication: BREAST CANCER FEMALE
     Dosage: 125 MG, CYCLIC (DAILY X 21 DAYS, THEN OFF 7 DAYS)
     Dates: start: 20201012, end: 2020

REACTIONS (4)
  - Constipation [Unknown]
  - Stomatitis [Unknown]
  - Urinary tract infection [Unknown]
  - Lip dry [Unknown]

NARRATIVE: CASE EVENT DATE: 2020
